FAERS Safety Report 20602833 (Version 3)
Quarter: 2022Q2

REPORT INFORMATION
  Report Type: Spontaneous
  Country: JP (occurrence: JP)
  Receive Date: 20220316
  Receipt Date: 20220420
  Transmission Date: 20220721
  Serious: Yes (Hospitalization)
  Sender: FDA-Public Use
  Company Number: JP-PFIZER INC-202200397629

PATIENT
  Age: 71 Year
  Sex: Female

DRUGS (2)
  1. IBRANCE [Suspect]
     Active Substance: PALBOCICLIB
     Dosage: 125 MG
  2. VIVIANT [Concomitant]
     Active Substance: BAZEDOXIFENE
     Dosage: UNK

REACTIONS (2)
  - Dizziness [Unknown]
  - Neutrophil count decreased [Unknown]
